FAERS Safety Report 16987175 (Version 1)
Quarter: 2019Q4

REPORT INFORMATION
  Report Type: Spontaneous
  Country: US (occurrence: US)
  Receive Date: 20191104
  Receipt Date: 20191104
  Transmission Date: 20200122
  Serious: No
  Sender: FDA-Public Use
  Company Number: US-JNJFOC-20191034837

PATIENT
  Sex: Female
  Weight: 56.75 kg

DRUGS (1)
  1. MENS ROGAINE EXTRA STRENGTH [Suspect]
     Active Substance: MINOXIDIL
     Indication: ALOPECIA
     Dosage: HALF A CAP FULL ONCE OR TWICE A DAY
     Route: 061

REACTIONS (3)
  - Product use issue [Unknown]
  - Product formulation issue [Unknown]
  - Off label use [Unknown]
